FAERS Safety Report 9455986 (Version 1)
Quarter: 2013Q3

REPORT INFORMATION
  Report Type: Spontaneous
  Country: US (occurrence: US)
  Receive Date: 20130813
  Receipt Date: 20130813
  Transmission Date: 20140515
  Serious: No
  Sender: FDA-Public Use
  Company Number: US-B.I. PHARMACEUTICALS,INC./RIDGEFIELD-2013-BI-23751BP

PATIENT
  Sex: Female
  Weight: 58 kg

DRUGS (5)
  1. SPIRIVA [Suspect]
     Indication: ASTHMA
     Dosage: 18 MCG
     Route: 055
     Dates: start: 2004, end: 201307
  2. SPIRIVA [Suspect]
     Route: 055
     Dates: start: 201307
  3. ADVAIR [Concomitant]
     Indication: ASTHMA
     Dosage: (INHALATION AEROSOL) STRENGTH: 100 MG/50 MG; DAILY DOSE: 200 MG/100 MG
     Route: 055
     Dates: start: 1997
  4. LOPRESSOR [Concomitant]
     Indication: MYOCARDIAL INFARCTION
     Dosage: 50 MG
     Route: 048
     Dates: start: 1995
  5. SIMVASTATIN [Concomitant]
     Indication: BLOOD CHOLESTEROL INCREASED
     Dosage: 40 MG
     Route: 048
     Dates: start: 1995

REACTIONS (3)
  - Nausea [Not Recovered/Not Resolved]
  - Dizziness [Not Recovered/Not Resolved]
  - Off label use [Not Recovered/Not Resolved]
